FAERS Safety Report 23256133 (Version 1)
Quarter: 2023Q4

REPORT INFORMATION
  Report Type: Spontaneous
  Country: CA (occurrence: None)
  Receive Date: 20231204
  Receipt Date: 20231204
  Transmission Date: 20240110
  Serious: Yes (Hospitalization)
  Sender: FDA-Public Use
  Company Number: CA-ROCHE-3462925

PATIENT
  Age: 60 Year
  Sex: Male
  Weight: 74 kg

DRUGS (10)
  1. BEVACIZUMAB [Suspect]
     Active Substance: BEVACIZUMAB
     Indication: Glioblastoma
     Route: 065
  2. BEVACIZUMAB [Suspect]
     Active Substance: BEVACIZUMAB
     Route: 042
  3. ATROVENT [Concomitant]
     Active Substance: IPRATROPIUM BROMIDE
  4. BENADRYL [Concomitant]
     Active Substance: DIPHENHYDRAMINE HYDROCHLORIDE
  5. EPINEPHRINE [Concomitant]
     Active Substance: EPINEPHRINE
  6. GRAVOL [Concomitant]
     Active Substance: DIMENHYDRINATE
  7. HYDROCORTISONE [Concomitant]
     Active Substance: HYDROCORTISONE
  8. OXYGEN [Concomitant]
     Active Substance: OXYGEN
  9. TYLENOL [Concomitant]
     Active Substance: ACETAMINOPHEN
  10. VENTOLIN [Concomitant]
     Active Substance: ALBUTEROL SULFATE

REACTIONS (8)
  - Bradycardia [Recovered/Resolved]
  - Disturbance in attention [Recovered/Resolved]
  - Fatigue [Recovered/Resolved]
  - Memory impairment [Recovered/Resolved]
  - Muscular weakness [Recovered/Resolved]
  - Off label use [Unknown]
  - Pulmonary embolism [Recovered/Resolved]
  - Sleep disorder [Recovered/Resolved]
